FAERS Safety Report 23884808 (Version 2)
Quarter: 2025Q2

REPORT INFORMATION
  Report Type: Spontaneous
  Country: US (occurrence: US)
  Receive Date: 20240522
  Receipt Date: 20250408
  Transmission Date: 20250716
  Serious: Yes (Hospitalization)
  Sender: SANOFI AVENTIS
  Company Number: US-SA-SAC20240516000530

PATIENT
  Age: 45 Year
  Sex: Female

DRUGS (3)
  1. DUPIXENT [Suspect]
     Active Substance: DUPILUMAB
     Indication: Asthma
     Route: 058
     Dates: start: 20231013, end: 20231013
  2. DUPIXENT [Suspect]
     Active Substance: DUPILUMAB
     Indication: Multiple allergies
     Dosage: 300 MG, QOW
     Route: 058
     Dates: start: 20231027
  3. DUPIXENT [Suspect]
     Active Substance: DUPILUMAB

REACTIONS (9)
  - Asthma [Unknown]
  - Therapeutic response decreased [Unknown]
  - Dairy intolerance [Unknown]
  - Pruritus [Recovered/Resolved]
  - Asthma [Recovering/Resolving]
  - Wheezing [Recovering/Resolving]
  - Product dose omission in error [Recovering/Resolving]
  - Product use in unapproved indication [Unknown]
  - Surgery [Unknown]

NARRATIVE: CASE EVENT DATE: 20231013
